FAERS Safety Report 21208072 (Version 1)
Quarter: 2022Q3

REPORT INFORMATION
  Report Type: Spontaneous
  Country: US (occurrence: US)
  Receive Date: 20220812
  Receipt Date: 20220812
  Transmission Date: 20221027
  Serious: No
  Sender: FDA-Public Use
  Company Number: US-drreddys-SPO/USA/22/0153147

PATIENT
  Age: 17 Year
  Sex: Female

DRUGS (1)
  1. ZENATANE [Suspect]
     Active Substance: ISOTRETINOIN
     Indication: Acne
     Dosage: 24 FEBRUARY 2022 10:37:29 AM; 30 MARCH 2022 05:17:12 PM; 01 MAY 2022 12:50:06 PM; 29 MAY 2022 12:30:

REACTIONS (4)
  - Headache [Unknown]
  - Dry eye [Unknown]
  - Back pain [Unknown]
  - Vision blurred [Unknown]
